FAERS Safety Report 24409539 (Version 1)
Quarter: 2024Q4

REPORT INFORMATION
  Report Type: Spontaneous
  Country: US (occurrence: US)
  Receive Date: 20241008
  Receipt Date: 20241008
  Transmission Date: 20250114
  Serious: Yes (Life-Threatening, Other)
  Sender: CHEPLAPHARM
  Company Number: US-CHEPLA-2024012716

PATIENT
  Age: 64 Year
  Sex: Male

DRUGS (4)
  1. HYDROXYUREA [Suspect]
     Active Substance: HYDROXYUREA
  2. CYTARABINE [Suspect]
     Active Substance: CYTARABINE
  3. DEXAMETHASONE [Suspect]
     Active Substance: DEXAMETHASONE
  4. HEPARIN [Suspect]
     Active Substance: HEPARIN SODIUM

REACTIONS (8)
  - Thrombosis [Unknown]
  - Pulmonary embolism [Unknown]
  - Embolic stroke [Unknown]
  - Atrial thrombosis [Unknown]
  - Peripheral ischaemia [Unknown]
  - Tumour lysis syndrome [Unknown]
  - Rhabdomyolysis [Unknown]
  - Brain death [Unknown]
